FAERS Safety Report 9993808 (Version 2)
Quarter: 2014Q1

REPORT INFORMATION
  Report Type: Report from Study
  Country: US (occurrence: US)
  Receive Date: 20140310
  Receipt Date: 20140310
  Transmission Date: 20141002
  Serious: Yes (Death, Hospitalization, Other)
  Sender: FDA-Public Use
  Company Number: US-GILEAD-2013-0085347

PATIENT
  Age: 24 Year
  Sex: Male
  Weight: 66 kg

DRUGS (5)
  1. SOFOSBUVIR [Suspect]
     Indication: HEPATITIS C
     Dosage: 400 MG, QD
     Route: 048
     Dates: start: 20130514, end: 20131027
  2. RIBAVIRIN [Suspect]
     Indication: HEPATITIS C
     Dosage: 1000 MG, QD
     Route: 048
     Dates: start: 20130514, end: 20131027
  3. RIBAVIRIN [Suspect]
     Dosage: 1000 MG, QD
     Route: 048
     Dates: start: 20080622, end: 20130318
  4. PEGINTERFERON [Suspect]
     Indication: HEPATITIS C
     Dosage: 90 ?G, Q1WK
     Route: 058
     Dates: start: 20080622, end: 20131027
  5. RIFAXIMIN [Concomitant]
     Dosage: UNK

REACTIONS (3)
  - Encephalopathy [Recovered/Resolved]
  - Lethargy [Recovered/Resolved]
  - Intra-abdominal haemorrhage [Fatal]
